FAERS Safety Report 9613795 (Version 5)
Quarter: 2014Q3

REPORT INFORMATION
  Report Type: Report from Study
  Country: FR (occurrence: FR)
  Receive Date: 20131010
  Receipt Date: 20140728
  Transmission Date: 20150326
  Serious: Yes (Hospitalization)
  Sender: FDA-Public Use
  Company Number: FR-EXELIXIS-XL18413002789

PATIENT
  Age: 70 Year
  Sex: Male

DRUGS (15)
  1. MOVICOL [Concomitant]
     Active Substance: POLYETHYLENE GLYCOL 3350\POTASSIUM CHLORIDE\SODIUM BICARBONATE\SODIUM CHLORIDE
  2. MOUTHWASH (BICARBONATE) [Concomitant]
  3. AUGMENTIN [Concomitant]
     Active Substance: AMOXICILLIN\CLAVULANATE POTASSIUM
  4. CIFLOX [Concomitant]
     Active Substance: CIPROFLOXACIN
  5. XL184 [Suspect]
     Active Substance: CABOZANTINIB
     Indication: PROSTATE CANCER
     Dosage: 60 MG, QD
     Route: 048
     Dates: start: 20130411, end: 20130501
  6. FOOD SUPPLEMENTS [Concomitant]
  7. PRIMPERAN [Concomitant]
     Active Substance: METOCLOPRAMIDE HYDROCHLORIDE
  8. TAREG [Concomitant]
     Active Substance: VALSARTAN
  9. XL184 [Suspect]
     Active Substance: CABOZANTINIB
     Indication: PROSTATE CANCER
     Dosage: 5 MG, BID
     Route: 048
     Dates: start: 20130411, end: 20130501
  10. PREDNISONE. [Concomitant]
     Active Substance: PREDNISONE
  11. ELIGARD [Concomitant]
     Active Substance: LEUPROLIDE ACETATE
  12. SERETIDE [Concomitant]
     Active Substance: FLUTICASONE FUROATE\SALMETEROL XINAFOATE
  13. AZITHROMYCIN [Concomitant]
     Active Substance: AZITHROMYCIN ANHYDROUS
  14. XL184 [Suspect]
     Active Substance: CABOZANTINIB
     Dosage: 40 MG, QD
     Route: 048
     Dates: start: 20130514, end: 20130528
  15. XL184 [Suspect]
     Active Substance: CABOZANTINIB
     Dosage: 5 MG, BID
     Route: 048
     Dates: start: 20130514, end: 20130528

REACTIONS (1)
  - Aspergillus infection [Not Recovered/Not Resolved]

NARRATIVE: CASE EVENT DATE: 20130529
